FAERS Safety Report 13113092 (Version 2)
Quarter: 2017Q1

REPORT INFORMATION
  Report Type: Spontaneous
  Country: KR (occurrence: KR)
  Receive Date: 20170113
  Receipt Date: 20170303
  Transmission Date: 20170428
  Serious: Yes (Hospitalization)
  Sender: FDA-Public Use
  Company Number: KR-009507513-1701KOR004753

PATIENT
  Age: 72 Year
  Sex: Male

DRUGS (17)
  1. DOXORUBICIN HYDROCHLORIDE. [Concomitant]
     Active Substance: DOXORUBICIN HYDROCHLORIDE
     Indication: BLADDER CANCER
     Dosage: 32 MG, ONCE (CYCLE 1)
     Route: 042
     Dates: start: 20160712, end: 20160712
  2. DEXAMETHASONE SODIUM PHOSPHATE. [Concomitant]
     Active Substance: DEXAMETHASONE SODIUM PHOSPHATE
     Indication: PROPHYLAXIS OF NAUSEA AND VOMITING
     Dosage: 10 MG, ONCE (CYCLE 1)
     Route: 042
     Dates: start: 20160712, end: 20160712
  3. ALOXI [Concomitant]
     Active Substance: PALONOSETRON HYDROCHLORIDE
     Indication: PROPHYLAXIS OF NAUSEA AND VOMITING
     Dosage: 0.25 MG, ONCE (CYCLE 1)
     Route: 042
     Dates: start: 20160712, end: 20160712
  4. LASIX [Concomitant]
     Active Substance: FUROSEMIDE
     Indication: PROPHYLAXIS
     Dosage: 20 MG, ONCE (STRENGTH: 20MG/2ML)
     Route: 042
     Dates: start: 20160712, end: 20160712
  5. EMEND (FOSAPREPITANT DIMEGLUMINE) [Suspect]
     Active Substance: FOSAPREPITANT DIMEGLUMINE
     Indication: PROPHYLAXIS OF NAUSEA AND VOMITING
     Dosage: 150 MG, ONCE
     Route: 042
     Dates: start: 20160712, end: 20160712
  6. EMEND (FOSAPREPITANT DIMEGLUMINE) [Suspect]
     Active Substance: FOSAPREPITANT DIMEGLUMINE
     Dosage: 150 MG, ONCE
     Route: 042
     Dates: start: 20161205, end: 20161205
  7. MAGMIL [Concomitant]
     Active Substance: MAGNESIUM HYDROXIDE
     Indication: CONSTIPATION PROPHYLAXIS
     Dosage: 500 MG, TID
     Route: 048
     Dates: start: 20160712, end: 20161031
  8. EMEND (FOSAPREPITANT DIMEGLUMINE) [Suspect]
     Active Substance: FOSAPREPITANT DIMEGLUMINE
     Dosage: 150 MG, ONCE
     Route: 042
     Dates: start: 20161029, end: 20161029
  9. PHAZYME COMPLEX [Concomitant]
     Indication: PROPHYLAXIS
     Dosage: 1 DF, TID
     Route: 048
     Dates: start: 20160712, end: 20161219
  10. EMEND (FOSAPREPITANT DIMEGLUMINE) [Suspect]
     Active Substance: FOSAPREPITANT DIMEGLUMINE
     Dosage: 150 MG, ONCE
     Route: 042
     Dates: start: 20160818, end: 20160818
  11. CISPLAN [Concomitant]
     Active Substance: CISPLATIN
     Indication: BLADDER CANCER
     Dosage: 76 MG, ONCE (CYCLE 1) (STRENGTH 50MG/100ML)
     Route: 042
     Dates: start: 20160712, end: 20160712
  12. VELBE [Concomitant]
     Active Substance: VINBLASTINE SULFATE
     Indication: BLADDER CANCER
     Dosage: 3.2 MG, ONCE (CYCLE 1)
     Route: 042
     Dates: start: 20160712, end: 20160712
  13. UNITREXATE [Concomitant]
     Active Substance: METHOTREXATE
     Indication: BLADDER CANCER
     Dosage: 32 MG, ONCE (CYCLE 1)(STRENGTH: 50MG/2ML)
     Route: 042
     Dates: start: 20160712, end: 20160712
  14. FOLIC ACID. [Concomitant]
     Active Substance: FOLIC ACID
     Indication: VITAMIN SUPPLEMENTATION
     Dosage: 1 MG, QD
     Route: 048
     Dates: start: 20160712, end: 20160920
  15. STILNOX [Concomitant]
     Active Substance: ZOLPIDEM TARTRATE
     Indication: PROPHYLAXIS
     Dosage: 10 MG, QD
     Route: 048
     Dates: start: 20160712, end: 20160721
  16. TYLENOL EXTENDED RELIEF CAPLETS [Concomitant]
     Active Substance: ACETAMINOPHEN
     Indication: PAIN PROPHYLAXIS
     Dosage: 650 MG, TID
     Route: 048
     Dates: start: 20160713, end: 20160715
  17. MACPERAN [Concomitant]
     Active Substance: METOCLOPRAMIDE HYDROCHLORIDE
     Indication: PROPHYLAXIS OF NAUSEA AND VOMITING
     Dosage: 1 DF, TID
     Route: 048
     Dates: start: 20160712, end: 20161004

REACTIONS (4)
  - Diarrhoea [Recovered/Resolved]
  - Bladder catheter removal [Recovered/Resolved]
  - Abdominal pain [Recovered/Resolved]
  - Upper respiratory tract infection [Recovered/Resolved]

NARRATIVE: CASE EVENT DATE: 20160716
